FAERS Safety Report 8893887 (Version 1)
Quarter: 2012Q4

REPORT INFORMATION
  Report Type: 
  Country: JP (occurrence: JP)
  Receive Date: 20121108
  Receipt Date: 20121108
  Transmission Date: 20130627
  Serious: Yes (Other)
  Sender: FDA-Public Use
  Company Number: JP-009507513-2012SP006937

PATIENT
  Age: 69 Year
  Sex: Female
  Weight: 52 kg

DRUGS (5)
  1. PEGINTERFERON ALFA-2B [Suspect]
     Indication: HEPATITIS C
     Dosage: 1.5 ?g/kg, QW
     Route: 058
     Dates: start: 20111208
  2. REBETOL [Suspect]
     Indication: HEPATITIS C
     Dosage: 800 mg, QD
     Route: 048
     Dates: start: 20111208, end: 20111227
  3. REBETOL [Suspect]
     Dosage: 400 mg, QD
     Route: 048
     Dates: start: 20111228, end: 20120111
  4. REBETOL [Suspect]
     Dosage: 200 mg, QD
     Route: 048
     Dates: start: 20120112
  5. TELAVIC [Suspect]
     Indication: HEPATITIS C
     Dosage: 2250 mg, QD
     Route: 048
     Dates: start: 20111208, end: 20120301

REACTIONS (2)
  - Rash [Recovered/Resolved]
  - Anaemia [Not Recovered/Not Resolved]
